FAERS Safety Report 13568796 (Version 1)
Quarter: 2017Q2

REPORT INFORMATION
  Report Type: Report from Study
  Country: US (occurrence: US)
  Receive Date: 20170522
  Receipt Date: 20170522
  Transmission Date: 20170830
  Serious: Yes (Hospitalization, Other)
  Sender: FDA-Public Use
  Company Number: US-BAYER-2017-004592

PATIENT
  Age: 66 Year
  Sex: Female

DRUGS (4)
  1. NEXAVAR [Suspect]
     Active Substance: SORAFENIB
     Indication: HEPATOCELLULAR CARCINOMA
     Dosage: 200 MG, QD
     Route: 048
     Dates: start: 20170120, end: 201701
  2. NEXAVAR [Suspect]
     Active Substance: SORAFENIB
     Indication: HEPATOCELLULAR CARCINOMA
     Dosage: 400 MG, QD
     Route: 048
     Dates: start: 20161226, end: 20170118
  3. NEXAVAR [Suspect]
     Active Substance: SORAFENIB
     Indication: HEPATOCELLULAR CARCINOMA
     Dosage: 200 MG, BID
     Route: 048
     Dates: start: 20170228
  4. NEXAVAR [Suspect]
     Active Substance: SORAFENIB
     Indication: HEPATOCELLULAR CARCINOMA
     Dosage: 200 MG, BID
     Route: 048
     Dates: start: 20170125, end: 20170202

REACTIONS (19)
  - Blood pressure increased [Recovering/Resolving]
  - Headache [None]
  - Fall [None]
  - Oropharyngeal pain [None]
  - Fatigue [None]
  - Blood pressure fluctuation [None]
  - Alopecia [Recovering/Resolving]
  - Fatigue [None]
  - Blood pressure increased [None]
  - Fatigue [Recovering/Resolving]
  - Headache [Recovering/Resolving]
  - Abdominal pain [None]
  - Hospitalisation [None]
  - Diarrhoea [None]
  - Musculoskeletal pain [None]
  - Abdominal pain [Recovering/Resolving]
  - Pain [None]
  - Radiotherapy [None]
  - Nausea [None]

NARRATIVE: CASE EVENT DATE: 20170107
